FAERS Safety Report 11452212 (Version 1)
Quarter: 2015Q3

REPORT INFORMATION
  Report Type: Spontaneous
  Country: US (occurrence: None)
  Receive Date: 20150902
  Receipt Date: 20150902
  Transmission Date: 20151125
  Serious: Yes (Other)
  Sender: FDA-Public Use
  Company Number: None

PATIENT
  Age: 92 Year
  Sex: Female
  Weight: 90.72 kg

DRUGS (1)
  1. METOPROLOL [Suspect]
     Active Substance: METOPROLOL
     Indication: HYPERTENSION
     Dosage: 1-2 DAYS
     Route: 048

REACTIONS (3)
  - Product substitution issue [None]
  - Blood pressure abnormal [None]
  - Product quality issue [None]

NARRATIVE: CASE EVENT DATE: 20150901
